FAERS Safety Report 5867648-9 (Version None)
Quarter: 2008Q3

REPORT INFORMATION
  Report Type: 
  Country: None (occurrence: None)
  Receive Date: 20080902
  Receipt Date: 20080827
  Transmission Date: 20090109
  Serious: Yes (Other)
  Sender: FDA-Public Use
  Company Number: US-JNJCH-2008022209

PATIENT
  Age: 90 Year
  Sex: Male
  Weight: 80.7 kg

DRUGS (1)
  1. BEN-GAY ULTRA [Suspect]
     Indication: MYALGIA
     Dosage: TEXT:ENOUGH TO COVER AFFECTED AREA ONCE
     Route: 061
     Dates: start: 20080817, end: 20080817

REACTIONS (1)
  - APPLICATION SITE BURN [None]
